FAERS Safety Report 5223896-2 (Version None)
Quarter: 2007Q1

REPORT INFORMATION
  Report Type: 
  Country: None (occurrence: None)
  Receive Date: 20070130
  Receipt Date: 20070119
  Transmission Date: 20070707
  Serious: Yes (Other)
  Sender: FDA-Public Use
  Company Number: 2007GB00122

PATIENT
  Age: 50 Year
  Sex: Female

DRUGS (3)
  1. ANASTROZOLE [Suspect]
     Indication: BREAST CANCER
     Route: 048
     Dates: start: 20050627
  2. ALENDRONIC ACID [Interacting]
     Indication: OSTEOPOROSIS PROPHYLAXIS
     Route: 048
     Dates: start: 20061124, end: 20061215
  3. CALCIUM CARBONATE [Concomitant]
     Indication: OSTEOPOROSIS
     Route: 048
     Dates: start: 20060424

REACTIONS (2)
  - DRUG INTERACTION [None]
  - MIGRAINE [None]
